FAERS Safety Report 9710307 (Version 1)
Quarter: 2013Q4

REPORT INFORMATION
  Report Type: Spontaneous
  Country: US (occurrence: US)
  Receive Date: 20131126
  Receipt Date: 20131126
  Transmission Date: 20140711
  Serious: Yes (Other)
  Sender: FDA-Public Use
  Company Number: US-BRISTOL-MYERS SQUIBB COMPANY-18777292

PATIENT
  Age: 64 Year
  Sex: Female
  Weight: 91.15 kg

DRUGS (4)
  1. BYETTA [Suspect]
     Indication: TYPE 2 DIABETES MELLITUS
     Dosage: NO OF DOSES:2,NDC NO:66780-212-01; REDUCED TO 5 MCG
     Dates: start: 201212, end: 20130409
  2. HUMULIN [Concomitant]
     Dosage: 1DF:15UNITS
  3. INSULIN [Concomitant]
     Dosage: 1DF:15UNITS
  4. LANTUS [Concomitant]

REACTIONS (5)
  - Hypoglycaemia [Recovered/Resolved]
  - Malaise [Not Recovered/Not Resolved]
  - Weight decreased [Unknown]
  - Decreased appetite [Not Recovered/Not Resolved]
  - Nausea [Not Recovered/Not Resolved]
